FAERS Safety Report 11186201 (Version 1)
Quarter: 2015Q2

REPORT INFORMATION
  Report Type: Spontaneous
  Country: IT (occurrence: IT)
  Receive Date: 20150612
  Receipt Date: 20150612
  Transmission Date: 20150821
  Serious: Yes (Other)
  Sender: FDA-Public Use
  Company Number: IT-ABBVIE-15P-083-1408549-00

PATIENT
  Age: 27 Year
  Sex: Female

DRUGS (1)
  1. DEPAKINE CHRONO [Suspect]
     Active Substance: VALPROATE SODIUM
     Indication: DRUG ABUSE
     Dosage: EXTENDED RELEASE
     Route: 048
     Dates: start: 20150501, end: 20150501

REACTIONS (2)
  - Drug abuse [Unknown]
  - Hyperammonaemia [Recovering/Resolving]

NARRATIVE: CASE EVENT DATE: 20150501
